FAERS Safety Report 7335851-7 (Version None)
Quarter: 2011Q1

REPORT INFORMATION
  Report Type: 
  Country: None (occurrence: None)
  Receive Date: 20110307
  Receipt Date: 20110210
  Transmission Date: 20110831
  Serious: No
  Sender: FDA-Public Use
  Company Number: US-ROCHE-758791

PATIENT
  Age: 3 Year
  Sex: Male
  Weight: 15.9 kg

DRUGS (1)
  1. TAMIFLU [Suspect]
     Dosage: STRENGTH: 12 MG/ML; DAILY
     Route: 048
     Dates: start: 20110202

REACTIONS (2)
  - UNDERDOSE [None]
  - DYSGEUSIA [None]
